FAERS Safety Report 21000634 (Version 1)
Quarter: 2022Q2

REPORT INFORMATION
  Report Type: Spontaneous
  Country: US (occurrence: US)
  Receive Date: 20220623
  Receipt Date: 20220623
  Transmission Date: 20220720
  Serious: No
  Sender: FDA-Public Use
  Company Number: US-INCYTE CORPORATION-2022IN005970

PATIENT

DRUGS (1)
  1. JAKAFI [Suspect]
     Active Substance: RUXOLITINIB
     Dosage: 20MG TABLET INTO FOUR PARTS AND TAKING THREE OUT OF THOSE FOUR
     Route: 065

REACTIONS (1)
  - Wrong technique in product usage process [Unknown]
